FAERS Safety Report 8733620 (Version 6)
Quarter: 2014Q1

REPORT INFORMATION
  Report Type: Spontaneous
  Country: BR (occurrence: BR)
  Receive Date: 20120821
  Receipt Date: 20140121
  Transmission Date: 20141002
  Serious: Yes (Other)
  Sender: FDA-Public Use
  Company Number: BR-PFIZER INC-2012199667

PATIENT
  Age: 54 Year
  Sex: Female
  Weight: 65 kg

DRUGS (9)
  1. SUTENT [Suspect]
     Indication: RENAL CELL CARCINOMA
     Dosage: 1 TABLET OF 50 MG, CYCLE 2 PER 1
     Route: 048
     Dates: start: 20120804
  2. OMEPRAZOL [Concomitant]
     Dosage: 20 MG, 1X/DAY
  3. PANTOPRAZOLE [Concomitant]
     Dosage: 20 MG, ONE TABLET ONCE DAILY, OR TWO TABLETS AS NEEDED
  4. BUSCOPAN [Concomitant]
     Dosage: 30 GTT, UNK
  5. CAPTOPRIL [Concomitant]
     Dosage: 25 MG, 2X/DAY
  6. RANITIDINE [Concomitant]
  7. ALUMINIUM HYDROXIDE [Concomitant]
  8. ZOLIBBS [Concomitant]
     Dosage: 1 APPLICATION, 1X/MONTH
  9. DOMPERIDONE [Concomitant]

REACTIONS (26)
  - Urinary tract infection [Unknown]
  - Yellow skin [Unknown]
  - Abdominal discomfort [Unknown]
  - Dysgeusia [Unknown]
  - Mouth injury [Recovered/Resolved]
  - Frequent bowel movements [Unknown]
  - Vomiting [Unknown]
  - Gastrooesophageal reflux disease [Unknown]
  - Gastrointestinal pain [Unknown]
  - Abdominal pain upper [Not Recovered/Not Resolved]
  - Dyspepsia [Not Recovered/Not Resolved]
  - Malaise [Not Recovered/Not Resolved]
  - Diarrhoea [Not Recovered/Not Resolved]
  - Swelling face [Not Recovered/Not Resolved]
  - Hypertension [Not Recovered/Not Resolved]
  - Gastritis [Not Recovered/Not Resolved]
  - External ear disorder [Not Recovered/Not Resolved]
  - Gingival pain [Not Recovered/Not Resolved]
  - Fatigue [Not Recovered/Not Resolved]
  - Oedema peripheral [Not Recovered/Not Resolved]
  - Swelling face [Not Recovered/Not Resolved]
  - Tooth disorder [Not Recovered/Not Resolved]
  - Tooth disorder [Not Recovered/Not Resolved]
  - Impaired healing [Not Recovered/Not Resolved]
  - Gingival bleeding [Not Recovered/Not Resolved]
  - Gingival pain [Not Recovered/Not Resolved]
